FAERS Safety Report 8874087 (Version 1)
Quarter: 2012Q4

REPORT INFORMATION
  Report Type: 
  Country: US (occurrence: US)
  Receive Date: 20121031
  Receipt Date: 20121031
  Transmission Date: 20130627
  Serious: Yes (Hospitalization)
  Sender: FDA-Public Use
  Company Number: US-AMGEN-USASP2012068523

PATIENT
  Sex: Male

DRUGS (2)
  1. NEUPOGEN [Suspect]
     Indication: NEUTROPENIA
     Dosage: 480 mug, UNK
  2. ANTINEOPLASTIC AGENTS [Concomitant]
     Indication: LEUKAEMIA

REACTIONS (2)
  - Hospitalisation [Unknown]
  - Incorrect storage of drug [Unknown]
